FAERS Safety Report 9919273 (Version 1)
Quarter: 2014Q1

REPORT INFORMATION
  Report Type: Spontaneous
  Country: PH (occurrence: PH)
  Receive Date: 20140224
  Receipt Date: 20140224
  Transmission Date: 20141002
  Serious: Yes (Other)
  Sender: FDA-Public Use
  Company Number: PH-JNJFOC-20140212439

PATIENT
  Age: 8 Decade
  Sex: Female
  Weight: 59.86 kg

DRUGS (2)
  1. XARELTO [Suspect]
     Indication: CEREBROVASCULAR ACCIDENT PROPHYLAXIS
     Route: 048
     Dates: start: 201301, end: 20140213
  2. XARELTO [Suspect]
     Indication: ATRIAL FIBRILLATION
     Route: 048
     Dates: start: 201301, end: 20140213

REACTIONS (4)
  - Haematemesis [Unknown]
  - Haematochezia [Unknown]
  - Hypotension [Unknown]
  - Gastrointestinal ulcer haemorrhage [Unknown]
